FAERS Safety Report 15763242 (Version 1)
Quarter: 2018Q4

REPORT INFORMATION
  Report Type: Spontaneous
  Country: US (occurrence: US)
  Receive Date: 20181227
  Receipt Date: 20181227
  Transmission Date: 20190205
  Serious: No
  Sender: FDA-Public Use
  Company Number: US-SHIRE-US201849515

PATIENT
  Sex: Female

DRUGS (3)
  1. VYVANSE [Suspect]
     Active Substance: LISDEXAMFETAMINE DIMESYLATE
     Indication: PRODUCT USED FOR UNKNOWN INDICATION
     Dosage: 50 MG, UNK
     Route: 065
     Dates: start: 2018
  2. ZOFRAN [Concomitant]
     Active Substance: ONDANSETRON HYDROCHLORIDE
     Indication: NAUSEA
  3. VYVANSE [Suspect]
     Active Substance: LISDEXAMFETAMINE DIMESYLATE
     Dosage: 20 MG, UNK
     Route: 005
     Dates: start: 2018

REACTIONS (4)
  - Malaise [Unknown]
  - Product physical issue [Unknown]
  - Fatigue [Unknown]
  - Anxiety [Unknown]

NARRATIVE: CASE EVENT DATE: 2018
